FAERS Safety Report 17082175 (Version 1)
Quarter: 2019Q4

REPORT INFORMATION
  Report Type: Spontaneous
  Country: US (occurrence: US)
  Receive Date: 20191030
  Receipt Date: 20191030
  Transmission Date: 20200122
  Serious: Yes (Death)
  Sender: FDA-Public Use
  Company Number: None

PATIENT
  Age: 72 Year
  Sex: Male
  Weight: 95.7 kg

DRUGS (3)
  1. DEXAMETHASONE. [Suspect]
     Active Substance: DEXAMETHASONE
     Dates: end: 20150418
  2. LENALIDOMIDE (CC-5013) [Suspect]
     Active Substance: LENALIDOMIDE
     Dates: end: 20150420
  3. VELCADE [Suspect]
     Active Substance: BORTEZOMIB
     Dates: end: 20150410

REACTIONS (2)
  - Myelodysplastic syndrome [None]
  - Metastatic neoplasm [None]

NARRATIVE: CASE EVENT DATE: 20150812
